FAERS Safety Report 7195837-2 (Version None)
Quarter: 2010Q4

REPORT INFORMATION
  Report Type: 
  Country: None (occurrence: None)
  Receive Date: 20101223
  Receipt Date: 20101011
  Transmission Date: 20110411
  Serious: No
  Sender: FDA-Public Use
  Company Number: US-AMGEN-KDL444737

PATIENT

DRUGS (14)
  1. ENBREL [Suspect]
     Indication: PRODUCT USED FOR UNKNOWN INDICATION
     Dosage: 50 MG, QWK
     Route: 058
  2. CONJUGATED ESTROGEN [Concomitant]
     Dosage: .3 MG, UNK
  3. METHOTREXATE [Concomitant]
     Dosage: 2.5 MG, UNK
  4. PREDNISONE [Concomitant]
     Dosage: 1 MG, UNK
  5. TRAMADOL HYDROCHLORIDE [Concomitant]
     Dosage: 50 MG, UNK
  6. ASPIRIN [Concomitant]
     Dosage: 325 MG, UNK
  7. TOPROL-XL [Concomitant]
     Dosage: 25 MG, UNK
  8. CLONIDINE HCL [Concomitant]
     Dosage: .1 MG, UNK
  9. AMITRIPTYLINE HCL [Concomitant]
     Dosage: 25 MG, UNK
  10. LANSOPRAZOLE [Concomitant]
     Dosage: 30 MG, UNK
  11. CALCIUM [Concomitant]
     Dosage: 500 MG, UNK
  12. LOVAZA [Concomitant]
     Dosage: 340 MG, UNK
  13. STOOL SOFTENER [Concomitant]
     Dosage: UNK UNK, UNK
  14. FOLIC ACID [Concomitant]
     Dosage: 5 MG, UNK

REACTIONS (4)
  - BRONCHITIS [None]
  - INJECTION SITE HAEMATOMA [None]
  - KNEE OPERATION [None]
  - TOOTH ABSCESS [None]
